FAERS Safety Report 25462264 (Version 2)
Quarter: 2025Q3

REPORT INFORMATION
  Report Type: Spontaneous
  Country: US (occurrence: US)
  Receive Date: 20250620
  Receipt Date: 20250722
  Transmission Date: 20251021
  Serious: Yes (Life-Threatening, Hospitalization)
  Sender: SK LIFE SCIENCE
  Company Number: US-SK LIFE SCIENCE, INC-SKPVG-2025-000848

PATIENT

DRUGS (12)
  1. XCOPRI [Suspect]
     Active Substance: CENOBAMATE
     Indication: Epilepsy
     Route: 048
     Dates: start: 2024
  2. XCOPRI [Suspect]
     Active Substance: CENOBAMATE
     Indication: Seizure
     Dosage: 200 MILLIGRAM, QD
     Route: 048
     Dates: end: 202504
  3. XCOPRI [Suspect]
     Active Substance: CENOBAMATE
     Route: 048
     Dates: start: 20250406, end: 202504
  4. XCOPRI [Suspect]
     Active Substance: CENOBAMATE
     Route: 048
     Dates: start: 202504, end: 202504
  5. XCOPRI [Suspect]
     Active Substance: CENOBAMATE
     Dosage: 100 MILLIGRAM EVERY NIGHT
     Route: 048
  6. XCOPRI [Suspect]
     Active Substance: CENOBAMATE
     Route: 048
  7. XCOPRI [Suspect]
     Active Substance: CENOBAMATE
     Route: 048
  8. XCOPRI [Suspect]
     Active Substance: CENOBAMATE
     Route: 048
  9. XCOPRI [Suspect]
     Active Substance: CENOBAMATE
     Route: 048
  10. LAMOTRIGINE [Concomitant]
     Active Substance: LAMOTRIGINE
     Indication: Product used for unknown indication
     Route: 065
  11. LEXAPRO [Concomitant]
     Active Substance: ESCITALOPRAM OXALATE
     Indication: Product used for unknown indication
     Dosage: 20MG ONE TABLET DAILY
     Route: 065
  12. IMATINIB [Concomitant]
     Active Substance: IMATINIB
     Indication: Chemotherapy
     Dosage: 400MG ONCE A DAY
     Route: 065

REACTIONS (7)
  - Status epilepticus [Recovered/Resolved]
  - Hospitalisation [Recovered/Resolved]
  - Seizure [Unknown]
  - Product dose omission issue [Recovered/Resolved]
  - Incorrect dose administered [Recovered/Resolved]
  - Wrong technique in product usage process [Recovered/Resolved]
  - Product dose omission issue [Recovered/Resolved]

NARRATIVE: CASE EVENT DATE: 20250406
